FAERS Safety Report 8833848 (Version 2)
Quarter: 2013Q1

REPORT INFORMATION
  Report Type: Spontaneous
  Country: US (occurrence: US)
  Receive Date: 20121011
  Receipt Date: 20130121
  Transmission Date: 20140127
  Serious: No
  Sender: FDA-Public Use
  Company Number: US-009507513-1207USA002222

PATIENT
  Sex: Female

DRUGS (1)
  1. TICE BCG LIVE [Suspect]
     Indication: BLADDER CANCER
     Dosage: UNK

REACTIONS (3)
  - Scratch [Recovered/Resolved]
  - Accidental exposure to product [Unknown]
  - No adverse event [Unknown]
